FAERS Safety Report 19572634 (Version 3)
Quarter: 2021Q4

REPORT INFORMATION
  Report Type: Spontaneous
  Country: US (occurrence: US)
  Receive Date: 20210715
  Receipt Date: 20211007
  Transmission Date: 20220303
  Serious: No
  Sender: FDA-Public Use
  Company Number: US-AMGEN-USASP2021107624

PATIENT
  Age: 67 Year
  Sex: Female

DRUGS (3)
  1. OTEZLA [Suspect]
     Active Substance: APREMILAST
     Indication: Psoriasis
     Dosage: 30 MILLIGRAM, BID
     Route: 048
     Dates: start: 20201028
  2. OTEZLA [Suspect]
     Active Substance: APREMILAST
     Indication: Psoriasis
  3. INFLUENZA VIRUS VACCINE [Concomitant]
     Active Substance: INFLUENZA VIRUS VACCINE

REACTIONS (5)
  - Psoriasis [Recovered/Resolved]
  - Pain [Not Recovered/Not Resolved]
  - Nausea [Recovered/Resolved]
  - Vomiting [Recovered/Resolved]
  - Rash [Not Recovered/Not Resolved]

NARRATIVE: CASE EVENT DATE: 20210601
